FAERS Safety Report 7707173-3 (Version None)
Quarter: 2011Q3

REPORT INFORMATION
  Report Type: 
  Country: None (occurrence: None)
  Receive Date: 20110824
  Receipt Date: 20110816
  Transmission Date: 20111222
  Serious: Yes (Death, Other)
  Sender: FDA-Public Use
  Company Number: US-BAYER-201041818NA

PATIENT
  Age: 50 Year
  Sex: Male
  Weight: 88 kg

DRUGS (12)
  1. IMDUR [Concomitant]
  2. PEPCID [Concomitant]
  3. TOPROL-XL [Concomitant]
  4. REGLAN [Concomitant]
  5. INSULIN [Concomitant]
  6. ALTACE [Concomitant]
  7. DEMADEX [Concomitant]
  8. DOCUSATE [Concomitant]
  9. TRASYLOL [Suspect]
     Indication: CORONARY ARTERY BYPASS
  10. NORVASC [Concomitant]
  11. TRASYLOL [Suspect]
     Indication: CATHETERISATION CARDIAC
     Route: 042
     Dates: start: 20050202, end: 20050202
  12. AMBIEN [Concomitant]

REACTIONS (12)
  - ANXIETY [None]
  - UNEVALUABLE EVENT [None]
  - MYOCARDIAL INFARCTION [None]
  - RENAL INJURY [None]
  - EMOTIONAL DISTRESS [None]
  - STRESS [None]
  - DEATH [None]
  - PAIN [None]
  - RENAL IMPAIRMENT [None]
  - FEAR [None]
  - RENAL FAILURE [None]
  - MULTI-ORGAN FAILURE [None]
